FAERS Safety Report 6269924-7 (Version None)
Quarter: 2009Q3

REPORT INFORMATION
  Report Type: 
  Country: None (occurrence: None)
  Receive Date: 20090716
  Receipt Date: 20090708
  Transmission Date: 20100115
  Serious: Yes (Hospitalization)
  Sender: FDA-Public Use
  Company Number: PHHO2009US08302

PATIENT
  Sex: Male
  Weight: 87 kg

DRUGS (4)
  1. RAD 666 RAD+TAB [Suspect]
     Indication: RENAL TRANSPLANT
     Dosage: 1.25 MG, BID
     Route: 048
     Dates: start: 20070324, end: 20090702
  2. MYFORTIC [Concomitant]
     Indication: RENAL TRANSPLANT
     Dosage: UNK
     Route: 048
     Dates: start: 20090701
  3. FLUCONAZOLE [Concomitant]
     Indication: PROPHYLAXIS
  4. BACTRIM [Concomitant]
     Indication: PROPHYLAXIS

REACTIONS (4)
  - DRUG INEFFECTIVE [None]
  - DRUG TOXICITY [None]
  - IGA NEPHROPATHY [None]
  - KIDNEY TRANSPLANT REJECTION [None]
